FAERS Safety Report 17650150 (Version 2)
Quarter: 2020Q2

REPORT INFORMATION
  Report Type: Spontaneous
  Country: US (occurrence: US)
  Receive Date: 20200409
  Receipt Date: 20200618
  Transmission Date: 20200713
  Serious: No
  Sender: FDA-Public Use
  Company Number: US-GLENMARK PHARMACEUTICALS-2020GMK046324

PATIENT

DRUGS (1)
  1. ASHLYNA [Suspect]
     Active Substance: ETHINYL ESTRADIOL\LEVONORGESTREL
     Indication: HORMONAL CONTRACEPTION
     Dosage: ASKU
     Route: 065

REACTIONS (3)
  - Product packaging difficult to open [Unknown]
  - Wrong technique in product usage process [Unknown]
  - Product package associated injury [Recovered/Resolved]

NARRATIVE: CASE EVENT DATE: 20200111
